FAERS Safety Report 6371222-8 (Version None)
Quarter: 2009Q3

REPORT INFORMATION
  Report Type: 
  Country: None (occurrence: None)
  Receive Date: 20090923
  Receipt Date: 20070522
  Transmission Date: 20100115
  Serious: Yes (Other)
  Sender: FDA-Public Use
  Company Number: US-ASTRAZENECA-2007UW05270

PATIENT
  Age: 61 Year
  Sex: Female
  Weight: 78.9 kg

DRUGS (25)
  1. SEROQUEL [Suspect]
     Indication: INSOMNIA
     Dosage: 25 TO 50 MG
     Route: 048
  2. SEROQUEL [Suspect]
     Route: 048
     Dates: start: 20020327
  3. SEROQUEL [Suspect]
     Route: 048
     Dates: start: 20051103
  4. SEROQUEL [Suspect]
     Route: 048
     Dates: start: 20051104
  5. GEODON [Concomitant]
  6. XANAX [Concomitant]
     Indication: SLEEP DISORDER
     Route: 048
     Dates: start: 20020327
  7. XANAX [Concomitant]
     Route: 048
     Dates: start: 20021120
  8. COMBIVENT [Concomitant]
     Dosage: 2 PUFFS, FOUR TIMES A DAY
     Dates: start: 20050325
  9. INDAPAMIDE [Concomitant]
     Route: 048
     Dates: start: 20010425
  10. CYMBALTA [Concomitant]
     Route: 048
     Dates: start: 20040924
  11. TRICOR [Concomitant]
     Route: 048
     Dates: start: 20050321
  12. TRICOR [Concomitant]
     Route: 048
     Dates: start: 20021126
  13. SINGULAIR [Concomitant]
     Route: 048
     Dates: start: 20040624
  14. MELATONIN [Concomitant]
     Indication: SLEEP DISORDER
     Route: 048
     Dates: start: 20010503
  15. LIPITOR [Concomitant]
     Route: 048
     Dates: start: 20030430
  16. LIPITOR [Concomitant]
     Route: 048
     Dates: start: 20041025
  17. FLONASE [Concomitant]
     Dates: start: 20011025
  18. CIMETIDINE [Concomitant]
     Dates: start: 20010813
  19. ESTRATEST [Concomitant]
     Dates: start: 20010706
  20. TRAZODONE [Concomitant]
     Dates: start: 20010425
  21. WELLBUTRIN SR [Concomitant]
     Dates: start: 20020920
  22. ZESTRIL [Concomitant]
     Dates: start: 20060810
  23. ZESTRIL [Concomitant]
     Dates: start: 20060912
  24. FLEXERIL [Concomitant]
     Indication: SLEEP DISORDER
     Dates: start: 20060912
  25. QUININE SULPHATE [Concomitant]
     Dates: start: 20040628

REACTIONS (2)
  - DIABETES MELLITUS [None]
  - DIABETES MELLITUS INADEQUATE CONTROL [None]
